FAERS Safety Report 9750066 (Version 1)
Quarter: 2013Q4

REPORT INFORMATION
  Report Type: Spontaneous
  Country: US (occurrence: US)
  Receive Date: 20131212
  Receipt Date: 20131212
  Transmission Date: 20140711
  Serious: No
  Sender: FDA-Public Use
  Company Number: US-GILEAD-US-CVT-090778

PATIENT
  Age: 58 Year
  Sex: Female
  Weight: 87.08 kg

DRUGS (17)
  1. RANEXA [Suspect]
     Indication: PRODUCT USED FOR UNKNOWN INDICATION
     Route: 048
     Dates: start: 20091105, end: 20091106
  2. ASPIRIN                            /00002701/ [Concomitant]
  3. PLAVIX [Concomitant]
  4. ISOSORBIDE DINITRATE [Concomitant]
  5. DIOVAN                             /01319601/ [Concomitant]
  6. AMLODIPIN                          /00972401/ [Concomitant]
  7. SIMVASTATIN [Concomitant]
  8. OMEPRAZOLE [Concomitant]
  9. METOPROLOL /00376901/ [Concomitant]
  10. HYDRALAZINE [Concomitant]
  11. LEVOTHYROXINE /00068001/ [Concomitant]
  12. LEXAPRO [Concomitant]
  13. ALPRAZOLAM [Concomitant]
  14. GLIMEPIRIDE [Concomitant]
  15. METFORMIN /00082701/ [Concomitant]
  16. FERROUS SULFATE [Concomitant]
  17. VITAMIN B12                        /00056201/ [Concomitant]

REACTIONS (4)
  - Migraine [Recovered/Resolved]
  - Feeling abnormal [Recovered/Resolved]
  - Headache [Recovered/Resolved]
  - Dizziness [Recovered/Resolved]
